FAERS Safety Report 10640814 (Version 1)
Quarter: 2014Q4

REPORT INFORMATION
  Report Type: Spontaneous
  Country: US (occurrence: None)
  Receive Date: 20141208
  Receipt Date: 20141208
  Transmission Date: 20150529
  Serious: No
  Sender: FDA-Public Use
  Company Number: None

PATIENT
  Sex: Female

DRUGS (1)
  1. AMOXICILLIN. [Suspect]
     Active Substance: AMOXICILLIN
     Dosage: SUSPENSION

REACTIONS (2)
  - Drug dispensing error [None]
  - Incorrect drug administration duration [None]

NARRATIVE: CASE EVENT DATE: 2014
